FAERS Safety Report 6543746-1 (Version None)
Quarter: 2010Q1

REPORT INFORMATION
  Report Type: 
  Country: None (occurrence: None)
  Receive Date: 20100119
  Receipt Date: 20100119
  Transmission Date: 20100710
  Serious: Yes (Other)
  Sender: FDA-Public Use
  Company Number: None

PATIENT
  Age: 58 Year
  Sex: Female
  Weight: 90.7194 kg

DRUGS (2)
  1. ROLAIDS MCNEIL CONSUMER HEALTHCARE [Suspect]
     Indication: ABDOMINAL DISCOMFORT
     Dosage: 2 TABLETS PO
     Route: 048
     Dates: start: 20100111, end: 20100115
  2. ROLAIDS MCNEIL CONSUMER HEALTHCARE [Suspect]
     Indication: DYSPEPSIA
     Dosage: 2 TABLETS PO
     Route: 048
     Dates: start: 20100111, end: 20100115

REACTIONS (7)
  - ABDOMINAL PAIN [None]
  - DIARRHOEA [None]
  - HEADACHE [None]
  - NAUSEA [None]
  - POOR QUALITY DRUG ADMINISTERED [None]
  - PRODUCT QUALITY ISSUE [None]
  - VOMITING [None]
